FAERS Safety Report 12160054 (Version 1)
Quarter: 2016Q1

REPORT INFORMATION
  Report Type: Spontaneous
  Country: US (occurrence: US)
  Receive Date: 20160308
  Receipt Date: 20160308
  Transmission Date: 20160526
  Serious: No
  Sender: FDA-Public Use
  Company Number: US-SA-2015SA025563

PATIENT
  Sex: Female

DRUGS (1)
  1. ELITEK [Suspect]
     Active Substance: RASBURICASE
     Route: 065

REACTIONS (1)
  - Drug level changed [Unknown]
